FAERS Safety Report 8852527 (Version 1)
Quarter: 2012Q4

REPORT INFORMATION
  Report Type: 
  Country: US (occurrence: US)
  Receive Date: 20121022
  Receipt Date: 20121022
  Transmission Date: 20130627
  Serious: Yes (Death)
  Sender: FDA-Public Use
  Company Number: US-ROCHE-1134105

PATIENT
  Sex: Male

DRUGS (5)
  1. RITUXAN [Suspect]
     Indication: CHRONIC LYMPHOCYTIC LEUKAEMIA
     Route: 065
     Dates: start: 20010215
  2. RITUXAN [Suspect]
     Indication: HYPOGAMMAGLOBULINAEMIA
  3. RITUXAN [Suspect]
     Indication: OFF LABEL USE
  4. PREDNISONE [Concomitant]
  5. CYTOXAN [Concomitant]

REACTIONS (6)
  - Middle ear effusion [Unknown]
  - Ear haemorrhage [Unknown]
  - Contusion [Unknown]
  - Dyspnoea [Unknown]
  - Cough [Unknown]
  - Death [Fatal]
